FAERS Safety Report 9771474 (Version 1)
Quarter: 2013Q4

REPORT INFORMATION
  Report Type: Spontaneous
  Country: FR (occurrence: FR)
  Receive Date: 20131219
  Receipt Date: 20131219
  Transmission Date: 20140711
  Serious: Yes (Hospitalization)
  Sender: FDA-Public Use
  Company Number: FR-009507513-1312FRA005482

PATIENT
  Age: 29 Year
  Sex: Female

DRUGS (3)
  1. ORGALUTRAN [Suspect]
     Indication: IN VITRO FERTILISATION
     Dosage: 1 DF, QD
     Route: 058
     Dates: start: 20130815, end: 20130818
  2. PUREGON [Suspect]
     Indication: IN VITRO FERTILISATION
     Dosage: 150 IU, QD
     Route: 058
     Dates: start: 20130810, end: 20130818
  3. OVITRELLE [Suspect]
     Indication: IN VITRO FERTILISATION
     Dosage: 1 DF, QD
     Route: 058
     Dates: start: 20130819

REACTIONS (4)
  - Ascites [Recovered/Resolved]
  - Dyspnoea [Recovered/Resolved]
  - Ovarian hyperstimulation syndrome [Recovered/Resolved]
  - Maternal exposure during pregnancy [Unknown]
